FAERS Safety Report 23725407 (Version 1)
Quarter: 2024Q2

REPORT INFORMATION
  Report Type: Spontaneous
  Country: US (occurrence: US)
  Receive Date: 20240410
  Receipt Date: 20240410
  Transmission Date: 20240716
  Serious: Yes (Other)
  Sender: FDA-Public Use
  Company Number: US-BRISTOL-MYERS SQUIBB COMPANY-2024-052940

PATIENT
  Age: 79 Year
  Sex: Male

DRUGS (1)
  1. LENALIDOMIDE [Suspect]
     Active Substance: LENALIDOMIDE
     Indication: Plasma cell myeloma
     Dosage: TAKE 1 CAPSULE BY MOUTH EVERYDAY ON DAYS 1-7 FOR 7 DAYS ON, 7 DAYS OFF THEN REPEAT FOR 28 DAY CYCLE
     Route: 048

REACTIONS (15)
  - Red blood cell count increased [Unknown]
  - Arthralgia [Unknown]
  - Fatigue [Unknown]
  - Thyroid disorder [Unknown]
  - Bronchitis [Recovered/Resolved]
  - Nausea [Unknown]
  - Decreased appetite [Unknown]
  - Affective disorder [Unknown]
  - Hypersomnia [Unknown]
  - Decreased activity [Unknown]
  - Constipation [Unknown]
  - Diarrhoea [Unknown]
  - Memory impairment [Unknown]
  - Cognitive disorder [Unknown]
  - Off label use [Unknown]

NARRATIVE: CASE EVENT DATE: 20240301
